FAERS Safety Report 26210119 (Version 1)
Quarter: 2025Q4

REPORT INFORMATION
  Report Type: Spontaneous
  Country: US (occurrence: US)
  Receive Date: 20251229
  Receipt Date: 20251229
  Transmission Date: 20260118
  Serious: Yes (Hospitalization, Other)
  Sender: Unknown Manufacturer
  Company Number: US-TONIX MEDICINES-2025TNX00082

PATIENT

DRUGS (1)
  1. TONMYA [Suspect]
     Active Substance: CYCLOBENZAPRINE HYDROCHLORIDE
     Indication: Back pain

REACTIONS (7)
  - Acute kidney injury [Unknown]
  - Unresponsive to stimuli [Unknown]
  - Rhabdomyolysis [Unknown]
  - Fall [Unknown]
  - Condition aggravated [Unknown]
  - Lethargy [Unknown]
  - Intentional overdose [Unknown]
